FAERS Safety Report 4502073-4 (Version None)
Quarter: 2004Q4

REPORT INFORMATION
  Report Type: 
  Country: None (occurrence: None)
  Receive Date: 20041116
  Receipt Date: 20040709
  Transmission Date: 20050328
  Serious: Yes (Disabling, Other)
  Sender: FDA-Public Use
  Company Number: US-MERCK-0407USA00891

PATIENT
  Age: 57 Year
  Sex: Female
  Weight: 95 kg

DRUGS (13)
  1. VIOXX [Suspect]
     Indication: BACK PAIN
     Route: 048
     Dates: start: 20010401, end: 20030201
  2. VIOXX [Suspect]
     Route: 048
  3. NEURONTIN [Concomitant]
     Route: 065
     Dates: start: 20010101, end: 20020101
  4. IBUPROFEN [Concomitant]
     Route: 065
     Dates: start: 19980101, end: 20030101
  5. CLARITIN [Concomitant]
     Route: 065
  6. PREMARIN [Concomitant]
     Route: 065
  7. CEPHALEXIN [Concomitant]
     Route: 065
  8. SKELAXIN [Concomitant]
     Route: 065
  9. TRAZODONE HYDROCHLORIDE [Concomitant]
     Route: 065
  10. ZOVIRAX [Concomitant]
     Route: 065
  11. METHYLPREDNISOLONE [Concomitant]
     Route: 065
  12. PROPOXYPHENE HYDROCHLORIDE [Concomitant]
     Route: 065
     Dates: start: 20010101, end: 20030101
  13. NAPROXEN [Concomitant]
     Route: 065
     Dates: start: 19990101, end: 20030101

REACTIONS (11)
  - ALCOHOL USE [None]
  - BACK INJURY [None]
  - CEREBROVASCULAR ACCIDENT [None]
  - DEPRESSION [None]
  - FALL [None]
  - FATIGUE [None]
  - GASTROOESOPHAGEAL REFLUX DISEASE [None]
  - HYPERTENSION [None]
  - INTERVERTEBRAL DISC PROTRUSION [None]
  - THROMBOSIS [None]
  - TRANSIENT ISCHAEMIC ATTACK [None]
